FAERS Safety Report 9121902 (Version 1)
Quarter: 2013Q1

REPORT INFORMATION
  Report Type: Spontaneous
  Country: US (occurrence: US)
  Receive Date: 20130114
  Receipt Date: 20130114
  Transmission Date: 20140127
  Serious: Yes (Other)
  Sender: FDA-Public Use
  Company Number: US-009507513-1301USA003936

PATIENT
  Sex: Male

DRUGS (1)
  1. VYTORIN [Suspect]
     Dosage: 10/20 MG, UNK
     Route: 048
     Dates: start: 2003

REACTIONS (2)
  - Blood creatine phosphokinase increased [Recovered/Resolved]
  - Pain in extremity [Recovering/Resolving]
